FAERS Safety Report 8385647-2 (Version None)
Quarter: 2012Q2

REPORT INFORMATION
  Report Type: 
  Country: None (occurrence: None)
  Receive Date: 20120525
  Receipt Date: 20120521
  Transmission Date: 20120825
  Serious: No
  Sender: FDA-Public Use
  Company Number: US-PFIZER INC-2012122670

PATIENT
  Sex: Male
  Weight: 118 kg

DRUGS (9)
  1. SYNTHROID [Concomitant]
     Indication: THYROID DISORDER
     Dosage: 100 UG, DAILY
  2. SUTENT [Suspect]
     Indication: RENAL CELL CARCINOMA
     Dosage: 50 MG, DAILY
     Dates: start: 20120401, end: 20120101
  3. ADVAIR DISKUS 100/50 [Concomitant]
     Indication: ASTHMA
     Dosage: 115/21 UG
  4. NORVASC [Concomitant]
     Indication: BLOOD PRESSURE ABNORMAL
     Dosage: 5 MG, DAILY
  5. ALBUTEROL SULFATE [Concomitant]
     Indication: LUNG DISORDER
     Dosage: UNK, AS NEEDED
  6. TRAMADOL [Concomitant]
     Indication: ARTHRITIS
     Dosage: 100 MG, 2X/DAY
  7. ADVAIR DISKUS 100/50 [Concomitant]
     Indication: DIAPHRAGM MUSCLE WEAKNESS
  8. SUTENT [Suspect]
     Dosage: UNK
     Dates: start: 20120510
  9. TYLENOL [Concomitant]
     Indication: ARTHRITIS
     Dosage: 1000 MG, 2X/DAY

REACTIONS (8)
  - SKIN EXFOLIATION [None]
  - FATIGUE [None]
  - HAIR COLOUR CHANGES [None]
  - NAUSEA [None]
  - PAIN IN EXTREMITY [None]
  - BACK PAIN [None]
  - CONSTIPATION [None]
  - ARTHRALGIA [None]
